FAERS Safety Report 7110470-6 (Version None)
Quarter: 2010Q4

REPORT INFORMATION
  Report Type: 
  Country: None (occurrence: None)
  Receive Date: 20101116
  Receipt Date: 20101116
  Transmission Date: 20110411
  Serious: No
  Sender: FDA-Public Use
  Company Number: None

PATIENT
  Age: 33 Year
  Sex: Female
  Weight: 56.6996 kg

DRUGS (3)
  1. CYMBALTA [Suspect]
     Indication: ANXIETY
     Dates: start: 20090810, end: 20100510
  2. CYMBALTA [Suspect]
     Indication: DEPRESSION
     Dates: start: 20090810, end: 20100510
  3. CYMBALTA [Suspect]

REACTIONS (17)
  - ANGER [None]
  - APHASIA [None]
  - ASTHENIA [None]
  - COMMUNICATION DISORDER [None]
  - COORDINATION ABNORMAL [None]
  - DIARRHOEA [None]
  - DIZZINESS [None]
  - DYSARTHRIA [None]
  - INFLUENZA LIKE ILLNESS [None]
  - NAUSEA [None]
  - NIGHT SWEATS [None]
  - NIGHTMARE [None]
  - PARAESTHESIA [None]
  - RASH [None]
  - SUICIDAL IDEATION [None]
  - TINNITUS [None]
  - WITHDRAWAL SYNDROME [None]
